FAERS Safety Report 5733758-X (Version None)
Quarter: 2008Q2

REPORT INFORMATION
  Report Type: 
  Country: None (occurrence: None)
  Receive Date: 20080509
  Receipt Date: 20080429
  Transmission Date: 20081010
  Serious: Yes (Hospitalization, Other)
  Sender: FDA-Public Use
  Company Number: FR-PFIZER INC-2008013166

PATIENT
  Sex: Male

DRUGS (8)
  1. GENOTONORM [Suspect]
     Indication: GROWTH RETARDATION
     Dosage: DAILY DOSE:.9MG
     Route: 058
     Dates: start: 20070428, end: 20070702
  2. GENOTONORM [Suspect]
     Dosage: DAILY DOSE:1MG
     Route: 058
     Dates: start: 20070703, end: 20071105
  3. GENOTONORM [Suspect]
     Dosage: DAILY DOSE:.6MG
     Route: 058
     Dates: start: 20071114, end: 20071119
  4. GENOTONORM [Suspect]
     Dosage: DAILY DOSE:1MG
     Route: 058
     Dates: start: 20071120, end: 20071124
  5. GENOTONORM [Suspect]
     Dosage: DAILY DOSE:1.2MG
     Route: 058
     Dates: start: 20071125, end: 20080207
  6. SODIUM BENZOATE [Concomitant]
     Route: 048
  7. CITRULLINE [Concomitant]
     Route: 048
     Dates: start: 19941001
  8. CYCLOSPORINE [Concomitant]
     Route: 048
     Dates: start: 20080124, end: 20080208

REACTIONS (3)
  - HISTIOCYTOSIS HAEMATOPHAGIC [None]
  - VIRAL INFECTION [None]
  - WEIGHT DECREASED [None]
